FAERS Safety Report 15453598 (Version 3)
Quarter: 2018Q4

REPORT INFORMATION
  Report Type: Spontaneous
  Country: US (occurrence: US)
  Receive Date: 20181001
  Receipt Date: 20181028
  Transmission Date: 20190204
  Serious: No
  Sender: FDA-Public Use
  Company Number: US-VIFOR (INTERNATIONAL) INC.-VIT-2018-09451

PATIENT
  Sex: Female
  Weight: 104.42 kg

DRUGS (15)
  1. VELTASSA [Suspect]
     Active Substance: PATIROMER
  2. JANUMET [Concomitant]
     Active Substance: METFORMIN HYDROCHLORIDE\SITAGLIPTIN PHOSPHATE
  3. AMITRIPTYLIN [Concomitant]
     Active Substance: AMITRIPTYLINE
  4. MAGNESIUM [Concomitant]
     Active Substance: MAGNESIUM
  5. SINGULAIR [Concomitant]
     Active Substance: MONTELUKAST SODIUM
  6. OPSUMIT [Concomitant]
     Active Substance: MACITENTAN
  7. VELTASSA [Suspect]
     Active Substance: PATIROMER
     Indication: HYPERKALAEMIA
     Route: 048
     Dates: start: 2018
  8. ZANPROL [Concomitant]
  9. LIPITOR [Concomitant]
     Active Substance: ATORVASTATIN CALCIUM
  10. LEVOTHYROXIN [Concomitant]
     Active Substance: LEVOTHYROXINE
  11. ATENOLOL. [Concomitant]
     Active Substance: ATENOLOL
     Indication: BLOOD PRESSURE MEASUREMENT
  12. GLIMEPIRIDE. [Concomitant]
     Active Substance: GLIMEPIRIDE
  13. FUROSEMIDE. [Concomitant]
     Active Substance: FUROSEMIDE
  14. NATRILAM [Concomitant]
  15. VELTASSA [Suspect]
     Active Substance: PATIROMER
     Dosage: DOSE INCREASED.
     Route: 065

REACTIONS (2)
  - Constipation [Recovering/Resolving]
  - Hypertension [Unknown]
